FAERS Safety Report 21902880 (Version 1)
Quarter: 2023Q1

REPORT INFORMATION
  Report Type: Spontaneous
  Country: US (occurrence: None)
  Receive Date: 20230123
  Receipt Date: 20230123
  Transmission Date: 20230418
  Serious: No
  Sender: FDA-Public Use
  Company Number: None

PATIENT
  Age: 63 Year
  Sex: Female

DRUGS (1)
  1. NINLARO [Suspect]
     Active Substance: IXAZOMIB CITRATE
     Indication: Plasma cell myeloma
     Dosage: OTHER QUANTITY : 2.3MG;?FREQUENCY : AS DIRECTED;?
     Route: 048
     Dates: start: 20200520

REACTIONS (2)
  - Product physical issue [None]
  - Therapy interrupted [None]

NARRATIVE: CASE EVENT DATE: 20230116
